FAERS Safety Report 23956757 (Version 1)
Quarter: 2024Q2

REPORT INFORMATION
  Report Type: Spontaneous
  Country: US (occurrence: US)
  Receive Date: 20240610
  Receipt Date: 20240610
  Transmission Date: 20240716
  Serious: No
  Sender: FDA-Public Use
  Company Number: US-SANDOZ-SDZ2024US056184

PATIENT
  Age: 76 Year
  Sex: Female
  Weight: 63 kg

DRUGS (1)
  1. CEFTRIAXONE [Suspect]
     Active Substance: CEFTRIAXONE\CEFTRIAXONE SODIUM
     Indication: Product used for unknown indication
     Dosage: UNK (2GM SINGLE DOSE VIAL; 2GM EVERY 24 HOURS)
     Route: 042

REACTIONS (4)
  - Cough [Recovered/Resolved]
  - Throat irritation [Recovered/Resolved]
  - Pharyngeal swelling [Recovered/Resolved]
  - Pruritus [Recovered/Resolved]

NARRATIVE: CASE EVENT DATE: 20240601
